FAERS Safety Report 4631553-6 (Version None)
Quarter: 2005Q2

REPORT INFORMATION
  Report Type: 
  Country: None (occurrence: None)
  Receive Date: 20050408
  Receipt Date: 20050325
  Transmission Date: 20051028
  Serious: Yes (Death, Other)
  Sender: FDA-Public Use
  Company Number: 2005052340

PATIENT
  Age: 14 Year
  Sex: Male

DRUGS (8)
  1. DOXORUBICIN HCL [Suspect]
     Indication: BONE NEOPLASM MALIGNANT
     Dosage: 20 MG/M2 FROM D1 TO D3
  2. CYCLOPHOSPHAMIDE [Suspect]
     Indication: BONE NEOPLASM MALIGNANT
  3. IFOSFAMIDE [Suspect]
     Indication: BONE NEOPLASM MALIGNANT
     Dosage: 3 G/M2 FROM D1 TO D3
  4. ETOPOSIDE [Suspect]
     Indication: BONE NEOPLASM MALIGNANT
     Dosage: 150 MG/M2 FROM D1 TO D3
  5. VINCRISTINE [Suspect]
     Indication: BONE NEOPLASM MALIGNANT
     Dosage: 1.5 MG/M2 ON D1
  6. BUSULFAN (BUSULFAN) [Suspect]
     Indication: BONE NEOPLASM MALIGNANT
     Dosage: 150 MG/M2 FOR 4 DAYS
  7. MELPHALAN (MELPHALAN) [Suspect]
     Indication: BONE NEOPLASM MALIGNANT
     Dosage: 140 MG/M2
  8. THIOTEPA [Suspect]
     Indication: BONE NEOPLASM MALIGNANT
     Dosage: 900 MG/M2

REACTIONS (10)
  - ASCITES [None]
  - DISSEMINATED INTRAVASCULAR COAGULATION [None]
  - GASTROINTESTINAL DISORDER [None]
  - GASTROINTESTINAL HAEMORRHAGE [None]
  - HEPATOTOXICITY [None]
  - PORTAL HYPERTENSION [None]
  - PORTAL VEIN THROMBOSIS [None]
  - PULMONARY VENO-OCCLUSIVE DISEASE [None]
  - SEPSIS [None]
  - THERAPY NON-RESPONDER [None]
